FAERS Safety Report 9262783 (Version 2)
Quarter: 2013Q2

REPORT INFORMATION
  Report Type: Spontaneous
  Country: NO (occurrence: NO)
  Receive Date: 20130430
  Receipt Date: 20130430
  Transmission Date: 20140414
  Serious: Yes (Congenital Anomaly, Other)
  Sender: FDA-Public Use
  Company Number: NO-JNJFOC-20130413746

PATIENT
  Age: 0 Day
  Sex: Male

DRUGS (2)
  1. TRAMADOL HYDROCHLORIDE [Suspect]
     Indication: FOETAL EXPOSURE DURING PREGNANCY
     Route: 064
  2. PARACETAMOL [Concomitant]
     Indication: FOETAL EXPOSURE DURING PREGNANCY
     Route: 064

REACTIONS (4)
  - Anal atresia [Recovering/Resolving]
  - Congenital anomaly [Recovering/Resolving]
  - Spine malformation [Unknown]
  - Foetal exposure during pregnancy [Unknown]
